FAERS Safety Report 9281741 (Version 2)
Quarter: 2013Q2

REPORT INFORMATION
  Report Type: Spontaneous
  Country: PT (occurrence: PT)
  Receive Date: 20130510
  Receipt Date: 20130513
  Transmission Date: 20140414
  Serious: Yes (Life-Threatening)
  Sender: FDA-Public Use
  Company Number: PT-B.I. PHARMACEUTICALS,INC./RIDGEFIELD-2013-BI-12315PO

PATIENT
  Age: 86 Year
  Sex: Male
  Weight: 50 kg

DRUGS (9)
  1. ATROVENT [Suspect]
     Indication: CHRONIC OBSTRUCTIVE PULMONARY DISEASE
     Dosage: 3 ANZ
  2. PRADAXA [Suspect]
     Indication: ATRIAL FIBRILLATION
     Dosage: 220 MG
     Route: 048
     Dates: end: 20121114
  3. EZOMEPRAZOLE [Concomitant]
     Dosage: 40 MG
  4. FINASTERIDE [Concomitant]
     Dosage: 40 MG
  5. FUROSEMIDE [Concomitant]
     Dosage: 40 MG
  6. LISINOPRIL [Concomitant]
     Dosage: 5 MG
  7. FILODUZINA [Concomitant]
     Dosage: 8 MG
  8. CITAGLIPTIN [Concomitant]
  9. LORAZEPAM [Concomitant]
     Dosage: 1 MG

REACTIONS (3)
  - Gastrointestinal haemorrhage [Recovered/Resolved]
  - Melaena [Recovered/Resolved]
  - Haematochezia [Recovered/Resolved]
